FAERS Safety Report 18376109 (Version 3)
Quarter: 2020Q4

REPORT INFORMATION
  Report Type: Spontaneous
  Country: US (occurrence: US)
  Receive Date: 20201013
  Receipt Date: 20201112
  Transmission Date: 20210114
  Serious: Yes (Death, Hospitalization, Other)
  Sender: FDA-Public Use
  Company Number: US-009507513-2010USA003056

PATIENT
  Age: 69 Year
  Sex: Male

DRUGS (3)
  1. AMLODIPINE [Concomitant]
     Active Substance: AMLODIPINE BESYLATE
     Dosage: UNK
  2. KEYTRUDA [Suspect]
     Active Substance: PEMBROLIZUMAB
     Indication: OESOPHAGEAL CARCINOMA
     Dosage: EVERY THREE WEEKS
     Route: 042
     Dates: start: 201909
  3. KEYTRUDA [Suspect]
     Active Substance: PEMBROLIZUMAB
     Dosage: EVERY 6 WEEKS
     Route: 042

REACTIONS (14)
  - Hair growth abnormal [Unknown]
  - Abdominal pain [Unknown]
  - Death [Fatal]
  - Hair colour changes [Unknown]
  - Gastrointestinal tube insertion [Unknown]
  - Intra-abdominal fluid collection [Unknown]
  - Therapeutic response unexpected [Unknown]
  - Loss of consciousness [Unknown]
  - Blood pressure immeasurable [Unknown]
  - Appetite disorder [Unknown]
  - Abdominal discomfort [Unknown]
  - Malaise [Unknown]
  - Constipation [Unknown]
  - Heart rate decreased [Unknown]

NARRATIVE: CASE EVENT DATE: 202010
